FAERS Safety Report 7106603-8 (Version None)
Quarter: 2010Q4

REPORT INFORMATION
  Report Type: 
  Country: None (occurrence: None)
  Receive Date: 20101116
  Receipt Date: 20100910
  Transmission Date: 20110411
  Serious: No
  Sender: FDA-Public Use
  Company Number: US-ABBOTT-10P-163-0670223-00

PATIENT
  Sex: Male
  Weight: 93.07 kg

DRUGS (3)
  1. SIMCOR [Suspect]
     Indication: BLOOD TRIGLYCERIDES INCREASED
     Dates: start: 20100801
  2. SIMCOR [Suspect]
     Dosage: AT BEDTIME
  3. FIBER [Concomitant]
     Indication: PRODUCT USED FOR UNKNOWN INDICATION
     Dosage: 2 IN THE MORNING AND 2 AT BEDTIME

REACTIONS (2)
  - MYALGIA [None]
  - NAUSEA [None]
